FAERS Safety Report 6437148-6 (Version None)
Quarter: 2009Q4

REPORT INFORMATION
  Report Type: 
  Country: None (occurrence: None)
  Receive Date: 20091112
  Receipt Date: 20091102
  Transmission Date: 20100525
  Serious: Yes (Other)
  Sender: FDA-Public Use
  Company Number: US-ELI_LILLY_AND_COMPANY-US200910002814

PATIENT
  Sex: Female
  Weight: 65.76 kg

DRUGS (3)
  1. FORTEO [Suspect]
     Indication: OSTEOPOROSIS
     Dosage: 20 UG, DAILY (1/D)
     Route: 058
     Dates: start: 20090401
  2. EVISTA [Suspect]
     Dosage: 60 MG, DAILY (1/D)
     Route: 048
  3. SYNTHROID [Concomitant]
     Dosage: 75 U, DAILY (1/D)
     Route: 048

REACTIONS (2)
  - CATARACT [None]
  - SQUAMOUS CELL CARCINOMA [None]
